FAERS Safety Report 5032270-3 (Version None)
Quarter: 2006Q2

REPORT INFORMATION
  Report Type: 
  Country: None (occurrence: None)
  Receive Date: 20060619
  Receipt Date: 20060607
  Transmission Date: 20061013
  Serious: Yes (Congenital Anomaly)
  Sender: FDA-Public Use
  Company Number: 2005-09-0996

PATIENT
  Weight: 4.4 kg

DRUGS (2)
  1. PEG-INTRON [Suspect]
     Indication: HEPATITIS C
     Dosage: DOSE BLINDED SUBCUTANEOUS
     Route: 058
     Dates: start: 20050511, end: 20050518
  2. REBETOL [Suspect]
     Indication: HEPATITIS C
     Dosage: 1400 MG QD ORAL
     Route: 048
     Dates: start: 20050511, end: 20050524

REACTIONS (8)
  - CONGENITAL ANOMALY [None]
  - CONGENITAL HYDRONEPHROSIS [None]
  - DRUG EXPOSURE DURING PREGNANCY [None]
  - HYDROURETER [None]
  - KIDNEY MALFORMATION [None]
  - PELVI-URETERIC OBSTRUCTION [None]
  - PYELECTASIA [None]
  - VESICOURETERIC REFLUX [None]
